FAERS Safety Report 4493113-X (Version None)
Quarter: 2004Q4

REPORT INFORMATION
  Report Type: 
  Country: None (occurrence: None)
  Receive Date: 20041104
  Receipt Date: 20041026
  Transmission Date: 20050328
  Serious: Yes (Hospitalization)
  Sender: FDA-Public Use
  Company Number: SE-GLAXOSMITHKLINE-B0349807A

PATIENT
  Age: 35 Year
  Sex: Female

DRUGS (14)
  1. VALTREX [Suspect]
     Indication: HERPES ZOSTER
     Dosage: 1G PER DAY
     Route: 048
     Dates: start: 20040820, end: 20040822
  2. LANSOPRAZOLE [Concomitant]
     Dosage: 15MG PER DAY
     Route: 065
  3. SANDIMMUNE [Concomitant]
     Dosage: 25MG PER DAY
     Route: 065
  4. ROCALTROL [Concomitant]
     Dosage: .25MCG PER DAY
     Route: 065
  5. FOLACIN [Concomitant]
     Dosage: 5MG PER DAY
     Route: 065
  6. IMPUGAN [Concomitant]
     Dosage: 40MG PER DAY
     Route: 065
  7. PREDNISOLONE [Concomitant]
     Dosage: 5MG PER DAY
     Route: 065
  8. HIPREX [Concomitant]
     Dosage: 1G PER DAY
     Route: 065
  9. TRANDATE [Concomitant]
     Dosage: 200MG PER DAY
     Route: 065
  10. RENITEC [Concomitant]
     Dosage: 10MG PER DAY
     Route: 065
  11. ALLOPURINOL [Concomitant]
     Route: 065
  12. LESCOL [Concomitant]
     Dosage: 40MG PER DAY
     Route: 065
  13. RENAGEL [Concomitant]
     Dosage: 403MG PER DAY
     Route: 065
  14. ORALOVITE [Concomitant]

REACTIONS (6)
  - ANXIETY [None]
  - ATAXIA [None]
  - FEELING ABNORMAL [None]
  - HALLUCINATION, AUDITORY [None]
  - NIGHTMARE [None]
  - TEARFULNESS [None]
